FAERS Safety Report 8175133-7 (Version None)
Quarter: 2012Q1

REPORT INFORMATION
  Report Type: 
  Country: None (occurrence: None)
  Receive Date: 20120229
  Receipt Date: 20120223
  Transmission Date: 20120608
  Serious: Yes (Other)
  Sender: FDA-Public Use
  Company Number: PHHY2012BR007881

PATIENT
  Age: 58 Year
  Sex: Male

DRUGS (1)
  1. EXFORGE [Suspect]
     Indication: HYPERTENSION
     Dosage: 1 DF(320/5 MG), DAILY, AT NIGHT

REACTIONS (3)
  - CONDITION AGGRAVATED [None]
  - EXOSTOSIS [None]
  - MUSCULOSKELETAL PAIN [None]
